FAERS Safety Report 7931140-8 (Version None)
Quarter: 2011Q4

REPORT INFORMATION
  Report Type: 
  Country: None (occurrence: None)
  Receive Date: 20111118
  Receipt Date: 20111118
  Transmission Date: 20120403
  Serious: Yes (Hospitalization)
  Sender: FDA-Public Use
  Company Number: None

PATIENT
  Sex: Female
  Weight: 107.6 kg

DRUGS (10)
  1. BENTYL [Concomitant]
  2. RIBAVIRIN [Concomitant]
  3. PEGASYS [Suspect]
     Indication: HEPATITIS C
     Dosage: 180 MCG 1/WEEK SC
     Route: 058
     Dates: start: 20000415
  4. PEGASYS [Concomitant]
  5. PEPCID [Concomitant]
  6. METAMUCIL-2 [Concomitant]
  7. LISINOPRIL [Concomitant]
  8. OMEPRAZOLE [Concomitant]
  9. PROAIR HFA [Concomitant]
  10. CELEXA [Concomitant]

REACTIONS (3)
  - INJECTION SITE CELLULITIS [None]
  - INJECTION SITE ABSCESS [None]
  - WRONG TECHNIQUE IN DRUG USAGE PROCESS [None]
